FAERS Safety Report 9473280 (Version 1)
Quarter: 2013Q3

REPORT INFORMATION
  Report Type: Spontaneous
  Country: US (occurrence: US)
  Receive Date: 20130823
  Receipt Date: 20130823
  Transmission Date: 20140515
  Serious: Yes (Other)
  Sender: FDA-Public Use
  Company Number: US-UCBSA-095783

PATIENT
  Age: 29 Year
  Sex: 0

DRUGS (1)
  1. CIMZIA [Suspect]
     Dosage: UNKNOWN DOSE

REACTIONS (3)
  - Psoriasis [Unknown]
  - Alopecia [Unknown]
  - Acne [Unknown]
